FAERS Safety Report 16431705 (Version 1)
Quarter: 2019Q3

REPORT INFORMATION
  Report Type: Spontaneous
  Country: US (occurrence: US)
  Receive Date: 20190613
  Receipt Date: 20190613
  Transmission Date: 20191004
  Serious: Yes (Disabling, Other)
  Sender: FDA-Public Use
  Company Number: None

PATIENT
  Age: 75 Year
  Sex: Male
  Weight: 79.43 kg

DRUGS (8)
  1. GLIMEPIRIDE. [Suspect]
     Active Substance: GLIMEPIRIDE
     Indication: BLOOD GLUCOSE INCREASED
     Dosage: ?          QUANTITY:1 TABLET(S);?
     Route: 048
     Dates: start: 20190311, end: 20190527
  2. METFORMIN [Concomitant]
     Active Substance: METFORMIN HYDROCHLORIDE
  3. GLUCOSAMINE [Concomitant]
     Active Substance: GLUCOSAMINE
  4. LOVASTATIN. [Concomitant]
     Active Substance: LOVASTATIN
  5. TUMERIC [Concomitant]
     Active Substance: HERBALS\TURMERIC
  6. ASPIRIN. [Concomitant]
     Active Substance: ASPIRIN
  7. FISH OIL [Concomitant]
     Active Substance: FISH OIL
  8. DAILY VITAMIN [Concomitant]
     Active Substance: VITAMINS

REACTIONS (3)
  - Influenza [None]
  - Asthenia [None]
  - Arthritis [None]

NARRATIVE: CASE EVENT DATE: 20190527
